FAERS Safety Report 25778104 (Version 1)
Quarter: 2025Q3

REPORT INFORMATION
  Report Type: Spontaneous
  Country: JP (occurrence: JP)
  Receive Date: 20250909
  Receipt Date: 20250909
  Transmission Date: 20251021
  Serious: Yes (Other)
  Sender: MYLAN
  Company Number: JP-MYLANLABS-2025M1075965

PATIENT
  Age: 57 Year
  Sex: Female

DRUGS (7)
  1. TACROLIMUS [Suspect]
     Active Substance: TACROLIMUS
     Indication: Prophylaxis against graft versus host disease
  2. PONATINIB [Suspect]
     Active Substance: PONATINIB
     Indication: Chronic myeloid leukaemia
  3. BLINATUMOMAB [Suspect]
     Active Substance: BLINATUMOMAB
     Indication: Chronic myeloid leukaemia
  4. METHOTREXATE [Suspect]
     Active Substance: METHOTREXATE
     Indication: Prophylaxis against graft versus host disease
  5. LAPINE T-LYMPHOCYTE IMMUNE GLOBULIN [Suspect]
     Active Substance: LAPINE T-LYMPHOCYTE IMMUNE GLOBULIN
     Indication: Prophylaxis against graft versus host disease
  6. FLUDARABINE [Concomitant]
     Active Substance: FLUDARABINE PHOSPHATE
     Indication: Bone marrow conditioning regimen
  7. MELPHALAN [Concomitant]
     Active Substance: MELPHALAN
     Indication: Bone marrow conditioning regimen

REACTIONS (1)
  - Drug ineffective [Unknown]
